FAERS Safety Report 6723307-1 (Version None)
Quarter: 2010Q2

REPORT INFORMATION
  Report Type: 
  Country: None (occurrence: None)
  Receive Date: 20100513
  Receipt Date: 20100513
  Transmission Date: 20101027
  Serious: Yes (Hospitalization)
  Sender: FDA-Public Use
  Company Number: None

PATIENT
  Age: 2 Year
  Sex: Male
  Weight: 11.3399 kg

DRUGS (1)
  1. CHILDREN'S TYLENOL 160 MG MCNEIL-PPC, INC [Suspect]
     Indication: PYREXIA
     Dosage: 5 ML 4 HRS PO
     Route: 048
     Dates: start: 20100324, end: 20100327

REACTIONS (6)
  - ASTHENIA [None]
  - COUGH [None]
  - EAR INFECTION [None]
  - NO THERAPEUTIC RESPONSE [None]
  - PRODUCT QUALITY ISSUE [None]
  - TREMOR [None]
